FAERS Safety Report 9806196 (Version 1)
Quarter: 2014Q1

REPORT INFORMATION
  Report Type: Spontaneous
  Country: TR (occurrence: None)
  Receive Date: 20140107
  Receipt Date: 20140107
  Transmission Date: 20141002
  Serious: Yes (Other)
  Sender: FDA-Public Use
  Company Number: 2013P1022325

PATIENT
  Age: 62 Year
  Sex: Female

DRUGS (2)
  1. MITOMYCIN [Suspect]
     Indication: BREAST CANCER METASTATIC
  2. NAVELBINE [Concomitant]

REACTIONS (5)
  - Hyperkeratosis [None]
  - Parakeratosis [None]
  - Dermatitis psoriasiform [None]
  - Hyperplasia [None]
  - Lymphocytic infiltration [None]
